FAERS Safety Report 15589687 (Version 2)
Quarter: 2020Q2

REPORT INFORMATION
  Report Type: Other
  Country: DE (occurrence: DE)
  Receive Date: 20181106
  Receipt Date: 20200527
  Transmission Date: 20200713
  Serious: Yes (Other)
  Sender: FDA-Public Use
  Company Number: DE-MACLEODS PHARMACEUTICALS US LTD-MAC2018018500

PATIENT

DRUGS (22)
  1. AMLODIPINE BESYLATE. [Suspect]
     Active Substance: AMLODIPINE BESYLATE
     Indication: PRODUCT USED FOR UNKNOWN INDICATION
     Dosage: 5 MILLIGRAM, BID IN THE MORNING AND IN THE EVENING
     Route: 065
     Dates: start: 2014
  2. CANDESARTAN. [Suspect]
     Active Substance: CANDESARTAN
     Dosage: 16 MILLIGRAM, QD, IN THE MORNING
     Route: 065
     Dates: start: 20181009
  3. NOVORAPID [Suspect]
     Active Substance: INSULIN ASPART
     Indication: PRODUCT USED FOR UNKNOWN INDICATION
     Dosage: IN THE MORNING, AT NOON AND IN THE EVENING, ACCORDING TO OUR OWN CALCULATIONS, 8 TO 40 IU PER TIME.
     Route: 065
     Dates: start: 2012
  4. LANTUS [Suspect]
     Active Substance: INSULIN GLARGINE
     Dosage: 24 INTERNATIONAL UNIT, QD  AT NIGHT
     Route: 065
     Dates: start: 2018
  5. ENALAPRIL [Concomitant]
     Active Substance: ENALAPRIL
     Indication: PRODUCT USED FOR UNKNOWN INDICATION
     Dosage: UNK
     Route: 065
  6. VALSACOR [Suspect]
     Active Substance: VALSARTAN
     Indication: PRODUCT USED FOR UNKNOWN INDICATION
     Dosage: UNK
     Route: 065
     Dates: start: 20180903, end: 20181009
  7. NOVAMINSULFON [Suspect]
     Active Substance: METAMIZOLE
     Indication: PRODUCT USED FOR UNKNOWN INDICATION
     Dosage: UNK, IF NECESSARY 2-3X DAILY 20-30 DROPS
     Route: 065
     Dates: start: 2014
  8. VALSARTAN HEXAL [Suspect]
     Active Substance: VALSARTAN
     Indication: PRODUCT USED FOR UNKNOWN INDICATION
     Dosage: 160 MILLIGRAM, QD IN THE MORNING
     Route: 065
     Dates: start: 2014
  9. CANDESARTAN ZENTIVA [Concomitant]
     Active Substance: CANDESARTAN CILEXETIL
     Indication: PRODUCT USED FOR UNKNOWN INDICATION
     Dosage: UNK
     Route: 065
  10. ALLOPURINOL. [Suspect]
     Active Substance: ALLOPURINOL
     Indication: PRODUCT USED FOR UNKNOWN INDICATION
     Dosage: 300 MILLIGRAM, QD, (IN THE MORNING)
     Route: 065
     Dates: start: 2014
  11. LANTUS [Suspect]
     Active Substance: INSULIN GLARGINE
     Indication: PRODUCT USED FOR UNKNOWN INDICATION
     Dosage: 20 INTERNATIONAL UNIT, QD AT NIGHT
     Route: 065
     Dates: start: 2014
  12. PANTOPRAZOLE [Suspect]
     Active Substance: PANTOPRAZOLE
     Indication: PROPHYLAXIS AGAINST GASTROINTESTINAL ULCER
     Dosage: 40 MILLIGRAM, QD AS NEEDED, IN MORNING
     Route: 065
     Dates: start: 2018
  13. AMLODIPINE BESYLATE. [Suspect]
     Active Substance: AMLODIPINE BESYLATE
     Dosage: 5 MILLIGRAM, QD, IN THE EVENING
     Route: 065
     Dates: start: 2018
  14. TAMSULOSIN [Suspect]
     Active Substance: TAMSULOSIN
     Indication: PRODUCT USED FOR UNKNOWN INDICATION
     Dosage: 0.4 MILLIGRAM, QD IN THE EVENING
     Route: 065
     Dates: start: 2014
  15. NOVORAPID [Suspect]
     Active Substance: INSULIN ASPART
     Dosage: MORNING 24, NOON 18, EVENING 20, SOLUTION FOR INJECTION
     Route: 065
     Dates: start: 2014
  16. CALCITRIOL. [Concomitant]
     Active Substance: CALCITRIOL
     Indication: PRODUCT USED FOR UNKNOWN INDICATION
     Dosage: 0.25 MILLIGRAM, QD IN THE EVENING
     Route: 065
     Dates: start: 2014
  17. SIMVASTATIN. [Suspect]
     Active Substance: SIMVASTATIN
     Indication: PRODUCT USED FOR UNKNOWN INDICATION
     Dosage: 40 MILLIGRAM, QD IN THE EVENING
     Route: 065
     Dates: start: 2014
  18. TORASEMID [Suspect]
     Active Substance: TORSEMIDE
     Indication: PRODUCT USED FOR UNKNOWN INDICATION
     Dosage: 20 MILLIGRAM, BID (1-1-0)
     Route: 065
     Dates: start: 2012
  19. TORASEMID [Suspect]
     Active Substance: TORSEMIDE
     Dosage: 40 MILLIGRAM, QD, 20 IN THE MORNING, 20 IN THE EVENING
     Route: 065
     Dates: start: 2014
  20. NOVORAPID [Suspect]
     Active Substance: INSULIN ASPART
     Dosage: MORNING 24, NOON 18, EVENING 20
     Route: 065
     Dates: start: 2018
  21. ALLOPURINOL. [Suspect]
     Active Substance: ALLOPURINOL
     Dosage: 100 MILLIGRAM, QD, IN MORNING
     Route: 065
     Dates: start: 2018
  22. ASPIRIN. [Suspect]
     Active Substance: ASPIRIN
     Indication: PRODUCT USED FOR UNKNOWN INDICATION
     Dosage: 100 MILLIGRAM, QD
     Route: 065
     Dates: start: 2014

REACTIONS (15)
  - Myalgia [Unknown]
  - Rectal tenesmus [Unknown]
  - Asthenia [Unknown]
  - Injection site swelling [Unknown]
  - Nausea [Unknown]
  - Spinal pain [Unknown]
  - Dyspnoea exertional [Unknown]
  - Dyspnoea [Unknown]
  - Blood glucose increased [Unknown]
  - Peripheral swelling [Unknown]
  - Morning sickness [Unknown]
  - Skin haemorrhage [Unknown]
  - Muscle spasms [Unknown]
  - Pelvic pain [Unknown]
  - Chest discomfort [Unknown]

NARRATIVE: CASE EVENT DATE: 201809
